FAERS Safety Report 7077229-X (Version None)
Quarter: 2010Q4

REPORT INFORMATION
  Report Type: 
  Country: None (occurrence: None)
  Receive Date: 20101101
  Receipt Date: 20101019
  Transmission Date: 20110411
  Serious: Yes (Hospitalization)
  Sender: FDA-Public Use
  Company Number: US-ELI_LILLY_AND_COMPANY-US201009004115

PATIENT
  Sex: Male
  Weight: 95.238 kg

DRUGS (11)
  1. PRASUGREL HYDROCHLORIDE [Suspect]
     Indication: ACUTE CORONARY SYNDROME
     Dosage: 10 MG, DAILY (1/D)
     Dates: start: 20100511, end: 20100908
  2. PRASUGREL HYDROCHLORIDE [Suspect]
     Dosage: 60 MG, OTHER
     Dates: start: 20100510, end: 20100510
  3. ASPIRIN [Concomitant]
     Dosage: 81 MG, DAILY (1/D)
     Dates: start: 20100512
  4. PROTONIX [Concomitant]
     Indication: GASTROOESOPHAGEAL REFLUX DISEASE
     Dosage: 40 MG, DAILY (1/D)
     Route: 048
  5. GLYBURIDE [Concomitant]
     Indication: DIABETES MELLITUS
     Dosage: 5 MG, 2/D
     Route: 048
  6. MEVACOR [Concomitant]
     Indication: HYPERLIPIDAEMIA
     Dosage: 40 MG, DAILY (1/D)
     Route: 048
  7. JANUVIA [Concomitant]
     Indication: DIABETES MELLITUS
     Dosage: 50 MG, 2/D
     Route: 048
  8. ZAROXOLYN [Concomitant]
     Indication: CARDIAC FAILURE
     Dosage: 2.5 MG, DAILY (1/D)
     Route: 048
  9. COREG [Concomitant]
     Indication: HYPERTENSION
     Dosage: 50 MG, 2/D
     Route: 048
  10. LEVEMIR [Concomitant]
     Indication: DIABETES MELLITUS
     Dosage: 40 IU, DAILY (1/D)
     Route: 058
  11. LASIX [Concomitant]
     Indication: CARDIAC FAILURE
     Dosage: 160 MG, 2/D
     Route: 048

REACTIONS (1)
  - ACUTE MYOCARDIAL INFARCTION [None]
